FAERS Safety Report 25809314 (Version 1)
Quarter: 2025Q3

REPORT INFORMATION
  Report Type: Spontaneous
  Country: US (occurrence: US)
  Receive Date: 20250916
  Receipt Date: 20250916
  Transmission Date: 20251021
  Serious: No
  Sender: SANOFI AVENTIS
  Company Number: US-SA-2025SA275390

PATIENT
  Sex: Male

DRUGS (1)
  1. ADMELOG [Suspect]
     Active Substance: INSULIN LISPRO
     Dosage: (ADMINISTERS HIMSELF THE MEDICATION WHEN HE GETS UP AND WHEN HE GOES TO BED AT NIGHT), BID
     Route: 065

REACTIONS (1)
  - Inappropriate schedule of product administration [Unknown]
